FAERS Safety Report 7949869-4 (Version None)
Quarter: 2011Q4

REPORT INFORMATION
  Report Type: 
  Country: None (occurrence: None)
  Receive Date: 20111123
  Receipt Date: 20111110
  Transmission Date: 20120403
  Serious: Yes (Death, Life-Threatening, Hospitalization, Other)
  Sender: FDA-Public Use
  Company Number: 2011MA015509

PATIENT
  Age: 83 Year
  Sex: Female
  Weight: 67.586 kg

DRUGS (97)
  1. CEFTIN [Concomitant]
  2. LEVAQUIN [Concomitant]
  3. ALLEGRA [Concomitant]
  4. ZYRTEC [Concomitant]
  5. BIAXIN [Concomitant]
  6. SULINDAC [Concomitant]
  7. TRAVATAN [Concomitant]
  8. DEXAMETHASONE [Concomitant]
  9. TRIAMCINOLONE [Concomitant]
  10. PERCOCET-5 [Concomitant]
  11. LIBRAX [Concomitant]
  12. TIMOPTIC [Concomitant]
  13. DETROL [Concomitant]
  14. NITROGLYCERIN [Concomitant]
  15. RHINOCORT [Concomitant]
  16. ALPRAZOLAM [Concomitant]
  17. VESICARE [Concomitant]
  18. KENALOG [Concomitant]
  19. MILK OF MAGNESIA TAB [Concomitant]
  20. ADVAIR DISKUS 100/50 [Concomitant]
  21. DESYREL [Concomitant]
  22. PREVACID [Concomitant]
  23. GLAUCOMA EYE DROPS [Concomitant]
  24. LORCET-HD [Concomitant]
  25. BENTYL [Concomitant]
  26. EYE DROPS [Concomitant]
  27. CLARITIN [Concomitant]
  28. KEFLEX [Concomitant]
  29. DURAGESIC-100 [Concomitant]
  30. REQUIP [Concomitant]
  31. ENABLEX [Concomitant]
  32. LEVOFLOXACIN [Concomitant]
  33. DIGIBYN [Concomitant]
  34. RELAFEN [Concomitant]
  35. NABUMETONE [Concomitant]
  36. REGLAN [Concomitant]
  37. PEPCID [Concomitant]
  38. MIACALCIN [Concomitant]
  39. ANTIBIOTIC THERAPY [Concomitant]
  40. VOLTAREN [Concomitant]
  41. CALCIUM [Concomitant]
  42. AZITHROMYCIN [Concomitant]
  43. FLUCONAZOLE [Concomitant]
  44. COLACE [Concomitant]
  45. DETROL LA [Concomitant]
  46. VIOXX [Concomitant]
  47. SINGULAIR [Concomitant]
  48. QUININE SULFATE [Concomitant]
  49. CARBIDOPA [Concomitant]
  50. COUGH SYRUP [Concomitant]
  51. ROCEPHIN [Concomitant]
  52. CEFTRIAXONE [Concomitant]
  53. INDERAL [Concomitant]
  54. PROTONIX [Concomitant]
  55. DITROPAN [Concomitant]
  56. XANAX [Concomitant]
  57. LABETALOL HCL [Concomitant]
  58. DARVOCET [Concomitant]
  59. DIGIBYN [Concomitant]
  60. DEMEROL [Concomitant]
  61. ATROVENT [Concomitant]
  62. OSCAL [Concomitant]
  63. DURAPHEN [Concomitant]
  64. AVELOX [Concomitant]
  65. LIDOCAINE [Concomitant]
  66. ANTI-COAGULANT [Concomitant]
  67. CYMBALTA [Concomitant]
  68. ALPHAGEN EYE DROPS [Concomitant]
  69. ZOLOFT [Concomitant]
  70. PANTOPRAZOLE [Concomitant]
  71. DIGIBIND [Concomitant]
  72. CELEBREX [Concomitant]
  73. DELSYM [Concomitant]
  74. NEXIUM [Concomitant]
  75. MYCOSTATIN CREAM [Concomitant]
  76. LEVADOPA [Concomitant]
  77. LYRICA [Concomitant]
  78. ANTIHISTAMINE [Concomitant]
  79. NIFEREX [Concomitant]
  80. TRAVOPROST [Concomitant]
  81. DIGOXIN [Suspect]
     Indication: SUPRAVENTRICULAR TACHYCARDIA
     Dosage: 0.5 MG LOADING DOSES;X1;IV
     Route: 042
  82. DIGOXIN [Suspect]
     Indication: ATRIAL FIBRILLATION
     Dosage: 0.5 MG LOADING DOSES;X1;IV
     Route: 042
  83. DIGOXIN [Suspect]
     Indication: TACHYARRHYTHMIA
     Dosage: 0.5 MG LOADING DOSES;X1;IV
     Route: 042
  84. PERCOCET [Concomitant]
  85. CARAFATE [Concomitant]
  86. NORVASC [Concomitant]
  87. BACITRACIN TOPICAL OINTMENT [Concomitant]
  88. PREMARIN [Concomitant]
  89. TEQUIN [Concomitant]
  90. AUGMENTIN [Concomitant]
  91. METAMUCIL-2 [Concomitant]
  92. NEURONTIN [Concomitant]
  93. CHROMAGEN [Concomitant]
  94. VITAMIN E [Concomitant]
  95. IBUPROFEN [Concomitant]
  96. FLU VACCINE [Concomitant]
  97. AMOXICILLIN [Concomitant]

REACTIONS (49)
  - PAIN [None]
  - BRADYCARDIA [None]
  - METABOLIC ACIDOSIS [None]
  - MENTAL STATUS CHANGES [None]
  - DECREASED APPETITE [None]
  - ABDOMINAL PAIN [None]
  - VOMITING [None]
  - HEART RATE INCREASED [None]
  - MYOCARDIAL INFARCTION [None]
  - CONFUSIONAL STATE [None]
  - FATIGUE [None]
  - TOXICITY TO VARIOUS AGENTS [None]
  - ASTHENIA [None]
  - URINARY TRACT INFECTION [None]
  - DISORIENTATION [None]
  - RENAL FAILURE [None]
  - HIGH DENSITY LIPOPROTEIN DECREASED [None]
  - OESOPHAGEAL DISORDER [None]
  - COORDINATION ABNORMAL [None]
  - ASPARTATE AMINOTRANSFERASE INCREASED [None]
  - CULTURE URINE POSITIVE [None]
  - BRONCHITIS [None]
  - OSTEOARTHRITIS [None]
  - HYPERTENSION [None]
  - BLOOD TRIGLYCERIDES INCREASED [None]
  - DIARRHOEA [None]
  - ARRHYTHMIA [None]
  - ANXIETY [None]
  - GENERAL PHYSICAL HEALTH DETERIORATION [None]
  - PALPITATIONS [None]
  - ABDOMINAL PAIN UPPER [None]
  - HIATUS HERNIA [None]
  - HYPOVOLAEMIA [None]
  - NAUSEA [None]
  - HYPOTENSION [None]
  - CARDIAC FAILURE [None]
  - TACHYARRHYTHMIA [None]
  - SINUS TACHYCARDIA [None]
  - DEHYDRATION [None]
  - ATRIAL FIBRILLATION [None]
  - GASTROOESOPHAGEAL REFLUX DISEASE [None]
  - RENAL FAILURE ACUTE [None]
  - RENAL TUBULAR NECROSIS [None]
  - ESCHERICHIA INFECTION [None]
  - CARDIO-RESPIRATORY ARREST [None]
  - BODY TEMPERATURE INCREASED [None]
  - BLOOD CHOLESTEROL INCREASED [None]
  - WEIGHT DECREASED [None]
  - DYSPHAGIA [None]
